FAERS Safety Report 4594162-3 (Version None)
Quarter: 2005Q1

REPORT INFORMATION
  Report Type: 
  Country: None (occurrence: None)
  Receive Date: 20050222
  Receipt Date: 20050209
  Transmission Date: 20050727
  Serious: Yes (Death)
  Sender: FDA-Public Use
  Company Number: 2005020008

PATIENT
  Age: 44 Year
  Sex: Female

DRUGS (1)
  1. FELBAMATE [Suspect]
     Indication: LENNOX-GASTAUT SYNDROME
     Dosage: PO
     Route: 048
     Dates: end: 20041230

REACTIONS (1)
  - CERVIX CARCINOMA [None]
